FAERS Safety Report 10142681 (Version 2)
Quarter: 2014Q2

REPORT INFORMATION
  Report Type: Spontaneous
  Country: MY (occurrence: None)
  Receive Date: 20140425
  Receipt Date: 20140501
  Transmission Date: 20141212
  Serious: Yes (Other)
  Sender: FDA-Public Use
  Company Number: FK201401434

PATIENT
  Sex: 0

DRUGS (2)
  1. INTAXEL (PACLITAXEL) (PACLITAXEL) [Suspect]
     Indication: ENDOMETRIAL CANCER
     Dosage: 100 MG, CYCLICAL
  2. CARBOPLATIN (CARBOPLATIN) [Concomitant]

REACTIONS (4)
  - Palpitations [None]
  - Nausea [None]
  - Flushing [None]
  - Periorbital oedema [None]
